FAERS Safety Report 10657913 (Version 1)
Quarter: 2014Q4

REPORT INFORMATION
  Report Type: Spontaneous
  Country: US (occurrence: None)
  Receive Date: 20141205
  Receipt Date: 20141205
  Transmission Date: 20150529
  Serious: No
  Sender: FDA-Public Use
  Company Number: 163-POMAL-14091433

PATIENT
  Age: 79 Year
  Sex: Male

DRUGS (7)
  1. POMALYST [Suspect]
     Active Substance: POMALIDOMIDE
     Indication: PLASMA CELL MYELOMA
     Route: 048
     Dates: start: 20130719
  2. MILK OF MAGNESIA (MAGNESIUM HYDROXIDE) [Concomitant]
  3. CLOTRIMAZOLE (CLOTRIMAZOLE) [Concomitant]
  4. VITAMIN D (ERGOCALCIFEROL) [Concomitant]
     Active Substance: ERGOCALCIFEROL
  5. ASPIRIN LOW DOSE (ACETYLSALICYLIC ACID) [Concomitant]
  6. METAMUCIL SMOOTH TEXTURE (PLANTAGO AFRA) [Concomitant]
  7. FLOMAX (TAMSULOSIN) [Concomitant]

REACTIONS (1)
  - Sinusitis [None]
